FAERS Safety Report 20250993 (Version 1)
Quarter: 2021Q4

REPORT INFORMATION
  Report Type: Spontaneous
  Country: US (occurrence: US)
  Receive Date: 20211229
  Receipt Date: 20211229
  Transmission Date: 20220303
  Serious: Yes (Other)
  Sender: FDA-Public Use
  Company Number: US-CLOVIS ONCOLOGY-CLO-2021-001065

PATIENT
  Sex: Female

DRUGS (1)
  1. RUBRACA [Suspect]
     Active Substance: RUCAPARIB CAMSYLATE
     Indication: Genital neoplasm malignant female
     Dosage: 600 MILLIGRAM, BID
     Route: 048
     Dates: start: 20180830, end: 20210707

REACTIONS (1)
  - Malignant neoplasm progression [Unknown]
